FAERS Safety Report 6700409-7 (Version None)
Quarter: 2010Q2

REPORT INFORMATION
  Report Type: 
  Country: None (occurrence: None)
  Receive Date: 20100428
  Receipt Date: 20100419
  Transmission Date: 20101027
  Serious: Yes (Hospitalization)
  Sender: FDA-Public Use
  Company Number: AT-ROCHE-698661

PATIENT
  Sex: Male

DRUGS (3)
  1. MYCOPHENOLATE MOFETIL [Suspect]
     Dosage: FORM PER PROTOCOL.
     Route: 048
     Dates: start: 20081014
  2. BELATACEPT [Suspect]
     Dosage: DOSING REGIMEN BLINDED
     Route: 042
     Dates: start: 20081014
  3. BLINDED BASILIXIMAB [Suspect]
     Dosage: DOSE BLINDED
     Route: 042
     Dates: start: 20081014, end: 20081018

REACTIONS (4)
  - BRAIN CONTUSION [None]
  - FALL [None]
  - RIB FRACTURE [None]
  - SPINAL FRACTURE [None]
